FAERS Safety Report 19364018 (Version 1)
Quarter: 2021Q2

REPORT INFORMATION
  Report Type: Spontaneous
  Country: US (occurrence: US)
  Receive Date: 20210602
  Receipt Date: 20210602
  Transmission Date: 20210717
  Serious: Yes (Death)
  Sender: FDA-Public Use
  Company Number: None

PATIENT
  Age: 80 Year
  Sex: Female

DRUGS (8)
  1. TORSEMIDE. [Concomitant]
     Active Substance: TORSEMIDE
  2. CARVEDILOL. [Concomitant]
     Active Substance: CARVEDILOL
  3. AMLODIPINE BESYLATE. [Concomitant]
     Active Substance: AMLODIPINE BESYLATE
  4. REPATHA [Suspect]
     Active Substance: EVOLOCUMAB
     Indication: HYPERLIPIDAEMIA
     Route: 058
     Dates: start: 20200107, end: 20210331
  5. ATORVASTATIN [Concomitant]
     Active Substance: ATORVASTATIN
  6. LEVEMIR FLEX TOUCH PEN INJ [Concomitant]
  7. ASPIRIN. [Concomitant]
     Active Substance: ASPIRIN
  8. ONE TOUCH VERIO METER KIT [Concomitant]

REACTIONS (1)
  - Death [None]

NARRATIVE: CASE EVENT DATE: 20210501
